FAERS Safety Report 8792262 (Version 1)
Quarter: 2012Q4

REPORT INFORMATION
  Report Type: 
  Country: US (occurrence: US)
  Receive Date: 20120918
  Receipt Date: 20120918
  Transmission Date: 20130627
  Serious: No
  Sender: FDA-Public Use
  Company Number: US-VERTEX PHARMACEUTICAL INC.-2012-020061

PATIENT
  Age: 59 Year
  Sex: Male
  Weight: 134 kg

DRUGS (4)
  1. INCIVEK [Suspect]
     Indication: HEPATITIS C
     Dosage: 750 mg, tid
     Route: 048
     Dates: start: 20120810
  2. RIBAVIRIN [Concomitant]
     Indication: HEPATITIS C
     Dosage: 800 mg, bid
     Route: 048
     Dates: start: 20120810
  3. PEGASYS [Concomitant]
     Indication: HEPATITIS C
     Dosage: 180 ?g,  weekly
     Route: 058
     Dates: start: 20120810
  4. TYLENOL /00020001/ [Concomitant]
     Indication: PAIN
     Dosage: 500 mg, prn
     Route: 048

REACTIONS (5)
  - VIIth nerve paralysis [Recovered/Resolved]
  - Feeling abnormal [Not Recovered/Not Resolved]
  - Rash pruritic [Recovered/Resolved]
  - Anal pruritus [Recovered/Resolved]
  - Anorectal discomfort [Recovered/Resolved]
